FAERS Safety Report 4307303-X (Version None)
Quarter: 2004Q1

REPORT INFORMATION
  Report Type: 
  Country: None (occurrence: None)
  Receive Date: 20040226
  Receipt Date: 20040212
  Transmission Date: 20041129
  Serious: Yes (Life-Threatening, Hospitalization)
  Sender: FDA-Public Use
  Company Number: 2004009332

PATIENT
  Age: 32 Year
  Sex: Male

DRUGS (6)
  1. DILANTIN [Suspect]
     Indication: CONVULSION
     Dosage: 500 MG (DAILY)
     Dates: start: 20030301, end: 20030906
  2. FOSPHENYTOIN SODIUM [Suspect]
     Indication: CONVULSION
     Dosage: 100 MG (800 MG BOLUS ONCE THEN 100 MG DAILY), INTRAVENOUS
     Route: 042
     Dates: start: 20030905, end: 20030906
  3. INTERFERON BETA (INTERFERON BETA) [Suspect]
     Indication: MULTIPLE SCLEROSIS
     Dosage: 44 MCG (THREE TIMES PER WEEK), OTHER
     Dates: start: 20021201, end: 20030905
  4. AMANTADINE HCL [Concomitant]
  5. HYDROCODONE (HYDROCODONE) [Concomitant]
  6. PAROXETINE HCL [Concomitant]

REACTIONS (4)
  - ANTICONVULSANT DRUG LEVEL BELOW THERAPEUTIC [None]
  - ENCEPHALOPATHY [None]
  - GRAND MAL CONVULSION [None]
  - HEPATIC FAILURE [None]
